FAERS Safety Report 21733381 (Version 1)
Quarter: 2022Q4

REPORT INFORMATION
  Report Type: Spontaneous
  Country: US (occurrence: None)
  Receive Date: 20221214
  Receipt Date: 20221214
  Transmission Date: 20230113
  Serious: Yes (Death, Hospitalization)
  Sender: FDA-Public Use
  Company Number: None

PATIENT
  Age: 72 Year
  Sex: Female
  Weight: 79.7 kg

DRUGS (18)
  1. ENHERTU [Suspect]
     Active Substance: FAM-TRASTUZUMAB DERUXTECAN-NXKI
     Indication: HER2 mutant non-small cell lung cancer
     Dosage: 5.4 MG/KG  MILLIGRAM  EVERY 21 DAYS INTRAVENOUS DRIP?
     Route: 041
     Dates: start: 20221111, end: 20221130
  2. SPIRONOLACTONE [Concomitant]
     Active Substance: SPIRONOLACTONE
  3. METOPROLOL SUCCINATE [Concomitant]
     Active Substance: METOPROLOL SUCCINATE
  4. FUROSEMIDE [Concomitant]
     Active Substance: FUROSEMIDE
  5. ONDANSETRON [Concomitant]
     Active Substance: ONDANSETRON
  6. Fluticasone furoate-vilaterol [Concomitant]
     Dates: start: 20221110
  7. PREDNISONE [Concomitant]
     Active Substance: PREDNISONE
     Dates: start: 20221111, end: 20221122
  8. EPOPROSTENOL [Concomitant]
     Active Substance: EPOPROSTENOL
     Dates: end: 20221210
  9. METHYLPREDNISOLONE [Concomitant]
     Active Substance: METHYLPREDNISOLONE
     Dates: end: 20221209
  10. DEXMEDETOMIDINE [Concomitant]
     Active Substance: DEXMEDETOMIDINE
     Dates: end: 20221210
  11. AZITHROMYCIN [Concomitant]
     Active Substance: AZITHROMYCIN
     Dates: end: 20221210
  12. VANCOMYCIN [Concomitant]
     Active Substance: VANCOMYCIN
     Dates: start: 20221207, end: 20221207
  13. CEFEPIME [Concomitant]
     Active Substance: CEFEPIME HYDROCHLORIDE
     Dates: start: 20221207, end: 20221210
  14. FOSAPREPITANT [Concomitant]
     Active Substance: FOSAPREPITANT
     Dates: start: 20221111, end: 20221111
  15. DIPHENHYDRAMINE [Concomitant]
     Active Substance: DIPHENHYDRAMINE
     Dates: start: 20221111, end: 20221111
  16. ACETAMINOPHEN [Concomitant]
     Active Substance: ACETAMINOPHEN
     Dates: start: 20221111, end: 20221210
  17. PALONOSETRON [Concomitant]
     Active Substance: PALONOSETRON
     Dates: start: 20221111, end: 20221111
  18. DEXAMETHASONE [Concomitant]
     Active Substance: DEXAMETHASONE
     Dates: start: 20221111, end: 20221111

REACTIONS (4)
  - Hyperbilirubinaemia [None]
  - Respiratory failure [None]
  - Pneumonitis [None]
  - Therapy cessation [None]

NARRATIVE: CASE EVENT DATE: 20221207
